FAERS Safety Report 19179736 (Version 8)
Quarter: 2023Q2

REPORT INFORMATION
  Report Type: Spontaneous
  Country: CA (occurrence: CA)
  Receive Date: 20210426
  Receipt Date: 20230403
  Transmission Date: 20230722
  Serious: Yes (Life-Threatening, Hospitalization, Disabling, Other)
  Sender: FDA-Public Use
  Company Number: CA-ORGANON-O2104USA001441

PATIENT
  Age: 30 Year
  Sex: Male

DRUGS (33)
  1. ZOCOR [Suspect]
     Active Substance: SIMVASTATIN
     Indication: Low density lipoprotein abnormal
     Dosage: UNK
     Route: 048
  2. ZOCOR [Suspect]
     Active Substance: SIMVASTATIN
     Indication: Low density lipoprotein
     Dosage: UNK
     Route: 065
  3. EZETIMIBE [Suspect]
     Active Substance: EZETIMIBE
     Indication: Low density lipoprotein abnormal
     Dosage: UNK
     Route: 048
  4. EZETIMIBE [Suspect]
     Active Substance: EZETIMIBE
     Indication: Low density lipoprotein
     Dosage: UNK
     Route: 065
  5. EZETIMIBE [Suspect]
     Active Substance: EZETIMIBE
     Dosage: UNK
     Route: 065
  6. DOCONEXENT\ICOSAPENT ETHYL [Suspect]
     Active Substance: DOCONEXENT\ICOSAPENT ETHYL
     Indication: Low density lipoprotein abnormal
     Dosage: UNK
     Route: 065
  7. DOCONEXENT\ICOSAPENT ETHYL [Suspect]
     Active Substance: DOCONEXENT\ICOSAPENT ETHYL
     Indication: Low density lipoprotein
     Dosage: UNK
     Route: 065
  8. LESCOL [Suspect]
     Active Substance: FLUVASTATIN SODIUM
     Indication: Low density lipoprotein abnormal
     Dosage: UNK
     Route: 065
  9. LESCOL [Suspect]
     Active Substance: FLUVASTATIN SODIUM
     Indication: Low density lipoprotein
     Dosage: UNK
     Route: 065
  10. LIPITOR [Suspect]
     Active Substance: ATORVASTATIN CALCIUM
     Indication: Low density lipoprotein abnormal
     Dosage: UNK
     Route: 065
  11. LIPITOR [Suspect]
     Active Substance: ATORVASTATIN CALCIUM
     Indication: Low density lipoprotein
     Dosage: UNK, DOSAGE FORM NOT SPECIFIED
     Route: 065
  12. COLESEVELAM HYDROCHLORIDE [Suspect]
     Active Substance: COLESEVELAM HYDROCHLORIDE
     Indication: Low density lipoprotein
     Dosage: UNK, FORMULATION: POWDER FOR SUSPENSION ORAL
     Route: 065
  13. COLESEVELAM HYDROCHLORIDE [Suspect]
     Active Substance: COLESEVELAM HYDROCHLORIDE
     Indication: Low density lipoprotein abnormal
  14. MEVACOR [Suspect]
     Active Substance: LOVASTATIN
     Indication: Low density lipoprotein abnormal
     Dosage: UNK
     Route: 065
  15. MEVACOR [Suspect]
     Active Substance: LOVASTATIN
     Indication: Low density lipoprotein
     Dosage: UNK
     Route: 065
  16. NIACIN [Suspect]
     Active Substance: NIACIN
     Indication: Low density lipoprotein abnormal
     Dosage: UNK; DOSAGE FORM: NOT SPECIFIED
     Route: 065
  17. NIACIN [Suspect]
     Active Substance: NIACIN
     Indication: Low density lipoprotein
     Dosage: UNK
     Route: 065
  18. CHOLESTYRAMINE [Suspect]
     Active Substance: CHOLESTYRAMINE
     Indication: Low density lipoprotein abnormal
     Dosage: UNK, FORMULATION: POWDER FOR SUSPENSION ORAL
     Route: 065
  19. CHOLESTYRAMINE [Suspect]
     Active Substance: CHOLESTYRAMINE
     Indication: Low density lipoprotein
     Dosage: UNK
     Route: 065
  20. PRALUENT [Suspect]
     Active Substance: ALIROCUMAB
     Indication: Low density lipoprotein abnormal
     Dosage: UNK, FORMULATION: SOLUTION SUBCUTANEOUS
     Route: 065
  21. PRALUENT [Suspect]
     Active Substance: ALIROCUMAB
     Indication: Low density lipoprotein
     Dosage: UNK
     Route: 065
  22. REPATHA [Suspect]
     Active Substance: EVOLOCUMAB
     Indication: Low density lipoprotein abnormal
     Dosage: UNK, 1ML SINGLE USE PREFILLED SYRINGE AND AUTOINJECTOR; FORMULATION: SOLUTION SUBCUTANEOUS
     Route: 065
  23. REPATHA [Suspect]
     Active Substance: EVOLOCUMAB
     Indication: Low density lipoprotein
     Dosage: 1 MILLILITER, FORMULATION: SOLUTION SUBCUTANEOUS
     Route: 058
  24. REPATHA [Suspect]
     Active Substance: EVOLOCUMAB
     Dosage: FORMULATION: SOLUTION SUBCUTANEOUS
     Route: 058
  25. PRAVASTATIN SODIUM [Suspect]
     Active Substance: PRAVASTATIN SODIUM
     Indication: Low density lipoprotein abnormal
     Dosage: UNK
     Route: 065
  26. PRAVASTATIN SODIUM [Suspect]
     Active Substance: PRAVASTATIN SODIUM
     Indication: Low density lipoprotein
     Dosage: UNK
     Route: 065
  27. ROSUVASTATIN CALCIUM [Suspect]
     Active Substance: ROSUVASTATIN CALCIUM
     Indication: Low density lipoprotein
     Dosage: UNK
     Route: 048
  28. ROSUVASTATIN CALCIUM [Suspect]
     Active Substance: ROSUVASTATIN CALCIUM
     Indication: Low density lipoprotein abnormal
     Dosage: UNK
     Route: 048
  29. ROSUVASTATIN CALCIUM [Suspect]
     Active Substance: ROSUVASTATIN CALCIUM
     Dosage: UNK
     Route: 065
  30. JUXTAPID [Suspect]
     Active Substance: LOMITAPIDE MESYLATE
     Indication: Low density lipoprotein abnormal
     Dosage: UNK
     Route: 065
  31. JUXTAPID [Suspect]
     Active Substance: LOMITAPIDE MESYLATE
     Indication: Low density lipoprotein
     Dosage: UNK
     Route: 065
  32. COLESEVELAM HYDROCHLORIDE [Suspect]
     Active Substance: COLESEVELAM HYDROCHLORIDE
     Indication: Low density lipoprotein abnormal
     Dosage: UNK
     Route: 065
  33. COLESEVELAM HYDROCHLORIDE [Suspect]
     Active Substance: COLESEVELAM HYDROCHLORIDE
     Dosage: UNK
     Route: 065

REACTIONS (3)
  - Cerebrovascular accident [Unknown]
  - Drug ineffective [Unknown]
  - Myocardial infarction [Unknown]
